FAERS Safety Report 12767171 (Version 2)
Quarter: 2016Q4

REPORT INFORMATION
  Report Type: Report from Study
  Country: JP (occurrence: JP)
  Receive Date: 20160921
  Receipt Date: 20161125
  Transmission Date: 20170207
  Serious: Yes (Hospitalization)
  Sender: FDA-Public Use
  Company Number: JP-JNJFOC-20160915525

PATIENT
  Age: 24 Month
  Sex: Male
  Weight: 11 kg

DRUGS (6)
  1. REMICADE [Suspect]
     Active Substance: INFLIXIMAB
     Indication: KAWASAKI^S DISEASE
     Route: 042
     Dates: start: 20160708, end: 20160708
  2. CICLOSPORIN [Suspect]
     Active Substance: CYCLOSPORINE
     Indication: KAWASAKI^S DISEASE
     Route: 048
     Dates: start: 20160717, end: 20160801
  3. CICLOSPORIN [Suspect]
     Active Substance: CYCLOSPORINE
     Indication: KAWASAKI^S DISEASE
     Route: 048
     Dates: start: 20160715, end: 20160716
  4. ASPIRIN. [Suspect]
     Active Substance: ASPIRIN
     Indication: KAWASAKI^S DISEASE
     Route: 048
     Dates: end: 20160802
  5. HUMAN NORMAL IMMUNOGLOBULIN [Concomitant]
     Active Substance: HUMAN IMMUNOGLOBULIN G
     Route: 065
     Dates: start: 20160710, end: 20160710
  6. HUMAN NORMAL IMMUNOGLOBULIN [Concomitant]
     Active Substance: HUMAN IMMUNOGLOBULIN G
     Route: 065
     Dates: start: 20160715, end: 20160715

REACTIONS (1)
  - Arthritis [Not Recovered/Not Resolved]

NARRATIVE: CASE EVENT DATE: 20160802
